FAERS Safety Report 25316092 (Version 1)
Quarter: 2025Q2

REPORT INFORMATION
  Report Type: Spontaneous
  Country: US (occurrence: US)
  Receive Date: 20250515
  Receipt Date: 20250515
  Transmission Date: 20250716
  Serious: No
  Sender: RANBAXY
  Company Number: US-SUN PHARMACEUTICAL INDUSTRIES LTD-2024R1-465555

PATIENT
  Age: 34 Year
  Sex: Female
  Weight: 77 kg

DRUGS (1)
  1. ILUMYA [Suspect]
     Active Substance: TILDRAKIZUMAB-ASMN
     Indication: Psoriasis
     Route: 065
     Dates: start: 202310, end: 202402

REACTIONS (3)
  - Treatment failure [Unknown]
  - Condition aggravated [Unknown]
  - Depressed mood [Unknown]
